FAERS Safety Report 4726901-2 (Version None)
Quarter: 2005Q3

REPORT INFORMATION
  Report Type: 
  Country: None (occurrence: None)
  Receive Date: 20050726
  Receipt Date: 20050711
  Transmission Date: 20060218
  Serious: Yes (Hospitalization)
  Sender: FDA-Public Use
  Company Number: 2005-0008442

PATIENT
  Age: 59 Year
  Sex: Female

DRUGS (4)
  1. HEPSERA [Suspect]
     Dosage: 10 MG, 1 IN 1 D, ORAL
     Route: 048
     Dates: start: 20020315, end: 20020901
  2. HEPSERA [Suspect]
     Dosage: 10 MG, 1 IN 1 D, ORAL
     Route: 048
     Dates: start: 20021201, end: 20041115
  3. ZEFFIX (LAMIVUDINE) [Concomitant]
  4. PREDNISOLONE [Concomitant]

REACTIONS (13)
  - ANGIOPATHY [None]
  - ARTHRALGIA [None]
  - BONE FISSURE [None]
  - CONDITION AGGRAVATED [None]
  - CONSTIPATION [None]
  - DIFFICULTY IN WALKING [None]
  - DYSPEPSIA [None]
  - GROIN PAIN [None]
  - HYPOPHOSPHATAEMIA [None]
  - OSTEOMALACIA [None]
  - POLYNEUROPATHY [None]
  - RENAL TUBULAR DISORDER [None]
  - SPINAL DEFORMITY [None]
